FAERS Safety Report 11095766 (Version 1)
Quarter: 2015Q2

REPORT INFORMATION
  Report Type: Report from Study
  Country: US (occurrence: US)
  Receive Date: 20150507
  Receipt Date: 20150507
  Transmission Date: 20150821
  Serious: Yes (Other)
  Sender: FDA-Public Use
  Company Number: PHEH2015US007930

PATIENT
  Age: 71 Year
  Sex: Female

DRUGS (1)
  1. EXELON PATCH [Suspect]
     Active Substance: RIVASTIGMINE
     Indication: PRODUCT USED FOR UNKNOWN INDICATION
     Dosage: UNK
     Route: 062

REACTIONS (6)
  - Skin cancer [Unknown]
  - Chronic obstructive pulmonary disease [Unknown]
  - Hypoxia [Unknown]
  - Gout [Unknown]
  - Dyspnoea [Unknown]
  - Parkinson^s disease [Unknown]
